FAERS Safety Report 14506818 (Version 1)
Quarter: 2018Q1

REPORT INFORMATION
  Report Type: Spontaneous
  Country: CA (occurrence: CA)
  Receive Date: 20180208
  Receipt Date: 20180208
  Transmission Date: 20180509
  Serious: Yes (Life-Threatening, Hospitalization)
  Sender: FDA-Public Use
  Company Number: CA-PFIZER INC-2018052061

PATIENT
  Age: 53 Year
  Sex: Female
  Weight: 59.41 kg

DRUGS (16)
  1. XARELTO [Concomitant]
     Active Substance: RIVAROXABAN
  2. ACT ESCITALOPRAM ODT [Concomitant]
  3. APO DIAZEPAM [Concomitant]
     Active Substance: DIAZEPAM
     Dosage: 5 MG, UNK
  4. APO-LORAZEPAM [Concomitant]
     Active Substance: LORAZEPAM
  5. PMS FINASTERIDE [Concomitant]
  6. PMS-TOPIRAMATE [Concomitant]
     Active Substance: TOPIRAMATE
  7. APO-OXYCODONE/ACETAMINOPHEN [Concomitant]
  8. CICLESONIDE [Concomitant]
     Active Substance: CICLESONIDE
     Dosage: SPRAY, METERED DOSE
  9. RATIO-LENOLTEC NO 3 [Concomitant]
     Active Substance: ACETAMINOPHEN\CAFFEINE\CODEINE PHOSPHATE
  10. PRISTIQ EXTENDED-RELEASE [Suspect]
     Active Substance: DESVENLAFAXINE SUCCINATE
     Indication: POST-TRAUMATIC STRESS DISORDER
     Dosage: 50 MG, 1X/DAY
     Route: 048
  11. LUMIGAN [Concomitant]
     Active Substance: BIMATOPROST
  12. PMS-MIRTAZAPINE [Concomitant]
  13. SANDOZ DULOXETINE [Concomitant]
  14. PREMARIN [Concomitant]
     Active Substance: ESTROGENS, CONJUGATED
  15. ABILIFY [Concomitant]
     Active Substance: ARIPIPRAZOLE
  16. APO-NAPROXEN [Concomitant]
     Active Substance: NAPROXEN

REACTIONS (4)
  - Tongue movement disturbance [Not Recovered/Not Resolved]
  - Tinnitus [Not Recovered/Not Resolved]
  - Paraesthesia [Not Recovered/Not Resolved]
  - Off label use [Unknown]
